FAERS Safety Report 11404684 (Version 2)
Quarter: 2015Q4

REPORT INFORMATION
  Report Type: Spontaneous
  Country: JP (occurrence: JP)
  Receive Date: 20150821
  Receipt Date: 20151006
  Transmission Date: 20160304
  Serious: Yes (Other)
  Sender: FDA-Public Use
  Company Number: JP-GLAXOSMITHKLINE-JP2015JPN034682

PATIENT

DRUGS (1)
  1. VOTRIENT [Suspect]
     Active Substance: PAZOPANIB HYDROCHLORIDE

REACTIONS (7)
  - Diarrhoea [Unknown]
  - Nausea [Unknown]
  - Haemorrhage [Unknown]
  - Hypertension [Unknown]
  - Decreased appetite [Unknown]
  - Vomiting [Unknown]
  - Hair colour changes [Unknown]
